FAERS Safety Report 9056797 (Version 3)
Quarter: 2013Q3

REPORT INFORMATION
  Report Type: Spontaneous
  Country: US (occurrence: US)
  Receive Date: 20130201
  Receipt Date: 20130822
  Transmission Date: 20140515
  Serious: Yes (Hospitalization, Other)
  Sender: FDA-Public Use
  Company Number: US-BAYER-2013-011524

PATIENT
  Age: 30 Year
  Sex: Female
  Weight: 93.42 kg

DRUGS (15)
  1. YASMIN [Suspect]
     Indication: MENSTRUAL CYCLE MANAGEMENT
  2. YAZ [Suspect]
  3. CELEBREX [Concomitant]
     Indication: ARTHRALGIA
  4. AMITRIPTYLINE [Concomitant]
  5. CYMBALTA [Concomitant]
  6. PERCOCET 5/325 [Concomitant]
  7. ATIVAN [Concomitant]
  8. MEDROL [Concomitant]
  9. HYDROXYZINE [Concomitant]
  10. PREDNISONE [Concomitant]
  11. RANITIDINE [Concomitant]
  12. ALLEGRA [Concomitant]
  13. BENADRYL [Concomitant]
  14. SINEQUAN [Concomitant]
  15. THROAT PREPARATIONS [Concomitant]

REACTIONS (5)
  - Pulmonary embolism [Recovered/Resolved]
  - Deep vein thrombosis [None]
  - Injury [None]
  - Pain [None]
  - Pain [None]
